FAERS Safety Report 10584428 (Version 1)
Quarter: 2014Q4

REPORT INFORMATION
  Report Type: Spontaneous
  Country: HK (occurrence: None)
  Receive Date: 20141112
  Receipt Date: 20141112
  Transmission Date: 20150529
  Serious: Yes (Hospitalization, Other)
  Sender: FDA-Public Use
  Company Number: 2014AP005545

PATIENT
  Sex: Female

DRUGS (1)
  1. FERRIPROX [Suspect]
     Active Substance: DEFERIPRONE
     Indication: THALASSAEMIA BETA
     Dates: start: 2005, end: 201407

REACTIONS (2)
  - Agranulocytosis [None]
  - Soft tissue infection [None]

NARRATIVE: CASE EVENT DATE: 2014
